FAERS Safety Report 7638314-4 (Version None)
Quarter: 2011Q3

REPORT INFORMATION
  Report Type: 
  Country: None (occurrence: None)
  Receive Date: 20110727
  Receipt Date: 20110727
  Transmission Date: 20111222
  Serious: No
  Sender: FDA-Public Use
  Company Number: None

PATIENT
  Age: 36 Year
  Sex: Male
  Weight: 72.574 kg

DRUGS (1)
  1. LEVAQUIN [Suspect]
     Indication: GASTROENTERITIS
     Dosage: 500MG
     Route: 048
     Dates: start: 20110410, end: 20110416

REACTIONS (2)
  - MYALGIA [None]
  - MUSCULAR WEAKNESS [None]
